FAERS Safety Report 9929338 (Version 2)
Quarter: 2014Q1

REPORT INFORMATION
  Report Type: Report from Study
  Country: JP (occurrence: JP)
  Receive Date: 20140227
  Receipt Date: 20140319
  Transmission Date: 20141002
  Serious: Yes (Other)
  Sender: FDA-Public Use
  Company Number: JP-TAKEDA-2014TJP001901

PATIENT
  Age: 70 Year
  Sex: Male

DRUGS (3)
  1. ALOGLIPTIN [Suspect]
     Indication: TYPE 2 DIABETES MELLITUS
     Dosage: 25 MG, QD
     Route: 048
     Dates: start: 20120117
  2. URSO                               /00465701/ [Concomitant]
     Dosage: UNK
     Route: 048
  3. CRESTOR [Concomitant]
     Dosage: UNK
     Route: 048

REACTIONS (1)
  - Cerebral infarction [Recovered/Resolved]
